FAERS Safety Report 5601290-X (Version None)
Quarter: 2008Q1

REPORT INFORMATION
  Report Type: 
  Country: None (occurrence: None)
  Receive Date: 20080124
  Receipt Date: 20080114
  Transmission Date: 20080703
  Serious: Yes (Hospitalization)
  Sender: FDA-Public Use
  Company Number: B0500422A

PATIENT
  Age: 35 Year
  Sex: Female

DRUGS (14)
  1. ZOPHREN [Suspect]
     Dosage: 8MG PER DAY
     Route: 042
     Dates: start: 20071120
  2. ENDOXAN [Suspect]
     Dosage: 500MG PER DAY
     Route: 042
     Dates: start: 20071120
  3. UROMITEXAN [Suspect]
     Dosage: 600MG PER DAY
     Route: 042
     Dates: start: 20071120
  4. UROMITEXAN [Suspect]
     Dosage: 600MG PER DAY
     Route: 048
     Dates: start: 20071120
  5. XANAX [Concomitant]
     Route: 048
     Dates: start: 20071120
  6. TRIATEC [Concomitant]
     Route: 048
  7. CORTANCYL [Concomitant]
     Dosage: 40MG PER DAY
     Route: 048
  8. INIPOMP [Concomitant]
     Dosage: 20MG PER DAY
  9. CORTANCYL [Concomitant]
     Dosage: 50MG PER DAY
  10. PREVISCAN [Concomitant]
     Dosage: 15MG PER DAY
  11. PARACETAMOL [Concomitant]
     Dosage: 500MG AS REQUIRED
  12. DEROXAT [Concomitant]
     Dosage: 1UNIT PER DAY
  13. CELLUVISC [Concomitant]
  14. POLARAMINE [Concomitant]
     Dosage: 5MG SINGLE DOSE
     Dates: start: 20071205

REACTIONS (10)
  - CHILLS [None]
  - DYSPNOEA [None]
  - HYPERHIDROSIS [None]
  - HYPERTHERMIA [None]
  - LIP SWELLING [None]
  - PAINFUL RESPIRATION [None]
  - PALATAL OEDEMA [None]
  - RASH ERYTHEMATOUS [None]
  - THIRST [None]
  - VOMITING [None]
